FAERS Safety Report 7877413-9 (Version None)
Quarter: 2011Q4

REPORT INFORMATION
  Report Type: 
  Country: None (occurrence: None)
  Receive Date: 20111031
  Receipt Date: 20111027
  Transmission Date: 20120403
  Serious: Yes (Life-Threatening, Hospitalization, Other)
  Sender: FDA-Public Use
  Company Number: US-B.I. PHARMACEUTICALS,INC./RIDGEFIELD-2011-BP-25174BP

PATIENT
  Sex: Male

DRUGS (19)
  1. LESCOL XL [Concomitant]
  2. MUCINEX [Concomitant]
  3. DUTASTERIDE [Concomitant]
  4. POTASSIUM CHLORIDE [Concomitant]
  5. ZITHROMAX [Concomitant]
  6. ALBUTEROL SULFATE [Concomitant]
  7. TRAMADOL HCL [Concomitant]
  8. DOXICYCLINE [Concomitant]
  9. ASPIRIN [Concomitant]
  10. BROMAX [Concomitant]
  11. PRADAXA [Suspect]
  12. FUROSEMIDE [Concomitant]
  13. BUTRANS [Concomitant]
  14. CARTIA XT [Concomitant]
  15. FORTEO [Suspect]
     Indication: OSTEOPOROSIS
     Dosage: 20 MCG
  16. TAMSULOSIN HYDROCHLORIDE [Concomitant]
  17. HYDROCODONE BITARTRATE [Concomitant]
  18. PREDNISONE [Concomitant]
  19. MEGESTROL ACETATE [Concomitant]

REACTIONS (13)
  - GASTROINTESTINAL HAEMORRHAGE [None]
  - PAINFUL RESPIRATION [None]
  - WHITE BLOOD CELL COUNT DECREASED [None]
  - TRACHEOSTOMY [None]
  - PNEUMONIA [None]
  - DIARRHOEA [None]
  - BACK DISORDER [None]
  - HAEMATOCHEZIA [None]
  - PULMONARY CONGESTION [None]
  - DYSPNOEA EXERTIONAL [None]
  - STAPHYLOCOCCAL INFECTION [None]
  - WEIGHT DECREASED [None]
  - GASTROINTESTINAL TUBE INSERTION [None]
